FAERS Safety Report 14518120 (Version 1)
Quarter: 2018Q1

REPORT INFORMATION
  Report Type: Spontaneous
  Country: CA (occurrence: CA)
  Receive Date: 20180212
  Receipt Date: 20180212
  Transmission Date: 20180509
  Serious: Yes (Life-Threatening, Hospitalization, Other)
  Sender: FDA-Public Use
  Company Number: CA-JNJFOC-20180213961

PATIENT
  Age: 50 Year
  Sex: Male
  Weight: 125 kg

DRUGS (1)
  1. INVOKANA [Suspect]
     Active Substance: CANAGLIFLOZIN
     Indication: TYPE 2 DIABETES MELLITUS
     Route: 048

REACTIONS (4)
  - Thrombosis [Unknown]
  - Anticoagulation drug level below therapeutic [Unknown]
  - Post thrombotic syndrome [Unknown]
  - Skin ulcer [Unknown]
